FAERS Safety Report 8310191-8 (Version None)
Quarter: 2012Q2

REPORT INFORMATION
  Report Type: 
  Country: None (occurrence: None)
  Receive Date: 20120425
  Receipt Date: 20120418
  Transmission Date: 20120825
  Serious: Yes (Other)
  Sender: FDA-Public Use
  Company Number: US-SANOFI-AVENTIS-2011SA046965

PATIENT
  Age: 64 Year
  Sex: Male

DRUGS (2)
  1. PROMETHAZINE [Concomitant]
     Indication: NAUSEA
     Dates: end: 20120201
  2. MULTAQ [Suspect]
     Indication: ATRIAL FIBRILLATION
     Route: 048
     Dates: start: 20100901

REACTIONS (2)
  - JOINT SWELLING [None]
  - BLOOD CREATININE INCREASED [None]
